FAERS Safety Report 9249825 (Version 1)
Quarter: 2013Q2

REPORT INFORMATION
  Report Type: Spontaneous
  Country: US (occurrence: US)
  Receive Date: 20130423
  Receipt Date: 20130423
  Transmission Date: 20140414
  Serious: Yes (Other)
  Sender: FDA-Public Use
  Company Number: PHEH2013US008556

PATIENT
  Sex: 0

DRUGS (2)
  1. EXFORGE [Suspect]
     Dosage: 1 DF (160 MG VALS AND 5 MG AMLO), UNK
  2. OMEPRAZOLE [Concomitant]

REACTIONS (1)
  - Blood sodium decreased [Recovered/Resolved]
